FAERS Safety Report 9882646 (Version 2)
Quarter: 2014Q1

REPORT INFORMATION
  Report Type: Report from Study
  Country: IT (occurrence: IT)
  Receive Date: 20140207
  Receipt Date: 20140207
  Transmission Date: 20141002
  Serious: Yes (Hospitalization)
  Sender: FDA-Public Use
  Company Number: IT-TAKEDA-TPA2012A09967

PATIENT
  Sex: 0

DRUGS (6)
  1. FEBUXOSTAT [Suspect]
     Dosage: 120 MG, QD
     Route: 048
     Dates: start: 20121123, end: 20121129
  2. DIFLUCAN [Concomitant]
     Indication: INFECTION PROPHYLAXIS
     Dosage: 200 MG, QD
     Route: 048
     Dates: start: 20121119, end: 20121207
  3. BACTRIM [Concomitant]
     Indication: INFECTION PROPHYLAXIS
     Dosage: 160+800MG,QD
     Route: 048
     Dates: start: 20121123, end: 20121130
  4. LEVOXACIN [Concomitant]
     Indication: INFECTION PROPHYLAXIS
     Dosage: 500 MG, QD
     Route: 048
     Dates: start: 20121119, end: 20121207
  5. DUROGESIC [Concomitant]
     Indication: ANALGESIC THERAPY
     Dosage: 50 ?G, QD
     Route: 061
  6. ANTRA [Concomitant]
     Dosage: 40 MG, QD
     Route: 042
     Dates: start: 20121119, end: 20121207

REACTIONS (1)
  - Pleural effusion [Recovered/Resolved]
